FAERS Safety Report 8460339-X (Version None)
Quarter: 2012Q2

REPORT INFORMATION
  Report Type: 
  Country: None (occurrence: None)
  Receive Date: 20120622
  Receipt Date: 20120607
  Transmission Date: 20120825
  Serious: Yes (Other)
  Sender: FDA-Public Use
  Company Number: BR-ASTELLAS-2011US004293

PATIENT
  Sex: Male
  Weight: 93 kg

DRUGS (6)
  1. PLACEBO [Suspect]
     Indication: HEPATIC NEOPLASM MALIGNANT
     Dosage: 300 MG, UID/QD
     Route: 048
     Dates: start: 20100406, end: 20100428
  2. PLACEBO [Suspect]
     Dosage: 150 MG, UID/QD
     Route: 048
     Dates: start: 20100720, end: 20101006
  3. SORAFENIB [Suspect]
     Indication: HEPATIC NEOPLASM MALIGNANT
     Dosage: 400 MG, BID
     Route: 048
     Dates: start: 20100406, end: 20100714
  4. SORAFENIB [Suspect]
     Dosage: 400 MG, BID
     Route: 048
     Dates: start: 20100811, end: 20101006
  5. PLACEBO [Suspect]
     Dosage: 150 MG, UID/QD
     Route: 048
     Dates: start: 20100430, end: 20100714
  6. SORAFENIB [Suspect]
     Dosage: 400 MG, UID/QD
     Route: 048
     Dates: start: 20100720, end: 20100810

REACTIONS (8)
  - OVERDOSE [None]
  - FATIGUE [None]
  - SLEEP DISORDER [None]
  - MEDICATION ERROR [None]
  - DIARRHOEA [None]
  - ABDOMINAL PAIN [None]
  - TONGUE HAEMORRHAGE [None]
  - BLOOD PRESSURE INCREASED [None]
